FAERS Safety Report 9511001 (Version 1)
Quarter: 2013Q3

REPORT INFORMATION
  Report Type: Spontaneous
  Country: US (occurrence: None)
  Receive Date: 20130909
  Receipt Date: 20130909
  Transmission Date: 20140515
  Serious: Yes (Other)
  Sender: FDA-Public Use
  Company Number: None

PATIENT
  Age: 27 Year
  Sex: Female

DRUGS (1)
  1. MAKENA 250MG/ML THER-RX CORP [Suspect]
     Indication: PREMATURE LABOUR
     Route: 030
     Dates: start: 19130819

REACTIONS (5)
  - Urticaria [None]
  - Dyspnoea [None]
  - Heart rate increased [None]
  - Chest pain [None]
  - Fluid retention [None]
